FAERS Safety Report 6344747-9 (Version None)
Quarter: 2009Q3

REPORT INFORMATION
  Report Type: 
  Country: None (occurrence: None)
  Receive Date: 20090904
  Receipt Date: 20090817
  Transmission Date: 20100115
  Serious: Yes (Death, Hospitalization)
  Sender: FDA-Public Use
  Company Number: 2008AL009219

PATIENT
  Age: 78 Year
  Sex: Female
  Weight: 72.5755 kg

DRUGS (17)
  1. DIGOXIN [Suspect]
     Dosage: 0.125MG, DAILY, PO; 0.25MG, DAILY, PO
     Route: 048
     Dates: start: 20030704, end: 20030923
  2. DIGOXIN [Suspect]
     Dosage: 0.125MG, DAILY, PO; 0.25MG, DAILY, PO
     Route: 048
     Dates: start: 20070501
  3. TOPROL-XL [Concomitant]
  4. ARICEPT [Concomitant]
  5. LASIX [Concomitant]
  6. GLYBURIDE [Concomitant]
  7. ASPIRIN [Concomitant]
  8. COUMADIN [Concomitant]
  9. RISPERDAL [Concomitant]
  10. BACTRIM [Concomitant]
  11. CARDIZEM [Concomitant]
  12. ZYPREXA [Concomitant]
  13. PLAVIX [Concomitant]
  14. ENALAPRIL MALEATE [Concomitant]
  15. METFORMIN HCL [Concomitant]
  16. ZOCOR [Concomitant]
  17. TETRACYCLINE [Concomitant]

REACTIONS (4)
  - ANXIETY [None]
  - INJURY [None]
  - PAIN [None]
  - SOCIAL PROBLEM [None]
